FAERS Safety Report 6371400-8 (Version None)
Quarter: 2009Q3

REPORT INFORMATION
  Report Type: 
  Country: None (occurrence: None)
  Receive Date: 20090923
  Receipt Date: 20080324
  Transmission Date: 20100115
  Serious: Yes (Hospitalization)
  Sender: FDA-Public Use
  Company Number: US-ASTRAZENECA-2007UW11094

PATIENT
  Age: 413 Month
  Sex: Female

DRUGS (11)
  1. SEROQUEL [Suspect]
     Indication: BIPOLAR DISORDER
     Route: 048
     Dates: start: 20051201, end: 20060801
  2. SEROQUEL [Suspect]
     Route: 048
     Dates: start: 20070219
  3. GLUCOPHAGE [Concomitant]
     Indication: DIABETES MELLITUS
     Dosage: 500 MG - 1000 MG
     Route: 048
  4. ASPIRIN [Concomitant]
     Indication: ANTICOAGULANT THERAPY
     Route: 048
  5. SIMVASTATIN [Concomitant]
     Indication: BLOOD CHOLESTEROL
     Dosage: 20 MG 1/2 TABLET DAILY
     Route: 048
  6. PRILOSEC [Concomitant]
     Route: 048
  7. XANAX [Concomitant]
     Indication: ANXIETY
     Route: 048
  8. PEPCID [Concomitant]
     Route: 048
  9. TYLENOL (CAPLET) [Concomitant]
     Route: 048
  10. ATIVAN [Concomitant]
     Indication: ANXIETY
     Route: 065
  11. PROTONIX [Concomitant]
     Route: 042

REACTIONS (4)
  - ANXIETY [None]
  - DYSPHAGIA [None]
  - FIBULA FRACTURE [None]
  - TYPE 2 DIABETES MELLITUS [None]
